FAERS Safety Report 6376178-X (Version None)
Quarter: 2009Q3

REPORT INFORMATION
  Report Type: 
  Country: None (occurrence: None)
  Receive Date: 20090918
  Receipt Date: 20090908
  Transmission Date: 20100115
  Serious: Yes (Hospitalization)
  Sender: FDA-Public Use
  Company Number: 2009AL005882

PATIENT
  Age: 19 Year
  Sex: Female

DRUGS (4)
  1. RIFAMPIN [Suspect]
     Indication: TUBERCULOSIS
  2. ISONIAZID [Concomitant]
  3. PYRAZINAMIDE [Concomitant]
  4. ETHAMBUTOL HYDROCHLORIDE [Concomitant]

REACTIONS (4)
  - LYMPHADENOPATHY [None]
  - OBSTRUCTIVE AIRWAYS DISORDER [None]
  - PARADOXICAL DRUG REACTION [None]
  - TACHYPNOEA [None]
